FAERS Safety Report 9165247 (Version 2)
Quarter: 2013Q2

REPORT INFORMATION
  Report Type: Report from Study
  Country: GB (occurrence: GB)
  Receive Date: 20130315
  Receipt Date: 20130509
  Transmission Date: 20140414
  Serious: Yes (Hospitalization)
  Sender: FDA-Public Use
  Company Number: GB-PFIZER INC-2013084530

PATIENT
  Age: 52 Year
  Sex: Female
  Weight: 86.4 kg

DRUGS (8)
  1. EPIRUBICIN HCL [Suspect]
     Indication: BREAST CANCER
     Dosage: 186 MG (100 MG/M2)
     Route: 042
     Dates: start: 20130218
  2. FLUOROURACIL [Suspect]
     Indication: BREAST CANCER
     Dosage: 925 MG (500 MG/M2)
     Route: 042
     Dates: start: 20130218
  3. CYCLOPHOSPHAMIDE [Suspect]
     Indication: BREAST CANCER
     Dosage: 920 MG (500 MG/M2)
     Route: 042
     Dates: start: 20130218
  4. CITALOPRAM [Concomitant]
     Dosage: 20 MG, UNK
     Route: 065
     Dates: start: 201006
  5. METOCLOPRAMIDE [Concomitant]
     Dosage: UNK DAILY DOSE 10 - 30MG
     Route: 065
     Dates: start: 20130128
  6. DEXAMETHASONE [Concomitant]
     Dosage: 8 MG, UNK
     Dates: start: 20130128
  7. NEULASTA [Concomitant]
     Dosage: 6 MG, UNK
     Route: 058
     Dates: start: 20130129
  8. ONDANSETRON [Concomitant]
     Dosage: 16 MG, UNK
     Route: 065
     Dates: start: 20130128

REACTIONS (1)
  - Febrile neutropenia [Recovered/Resolved]
